FAERS Safety Report 19779512 (Version 1)
Quarter: 2021Q3

REPORT INFORMATION
  Report Type: Spontaneous
  Country: US (occurrence: US)
  Receive Date: 20210902
  Receipt Date: 20210902
  Transmission Date: 20211014
  Serious: No
  Sender: FDA-Public Use
  Company Number: US-PFIZER INC-202100992738

PATIENT
  Sex: Female

DRUGS (3)
  1. LYRICA CR [Suspect]
     Active Substance: PREGABALIN
     Dosage: 75 MG
  2. LYRICA CR [Suspect]
     Active Substance: PREGABALIN
     Dosage: 50 MG
  3. LYRICA CR [Suspect]
     Active Substance: PREGABALIN
     Dosage: 25 MG

REACTIONS (6)
  - Feeling hot [Unknown]
  - Pruritus [Unknown]
  - Chills [Unknown]
  - Vision blurred [Unknown]
  - Rash [Unknown]
  - Insomnia [Unknown]
